FAERS Safety Report 23704976 (Version 1)
Quarter: 2024Q2

REPORT INFORMATION
  Report Type: Spontaneous
  Country: IT (occurrence: IT)
  Receive Date: 20240404
  Receipt Date: 20240404
  Transmission Date: 20240715
  Serious: Yes (Other)
  Sender: FDA-Public Use
  Company Number: IT-SUN PHARMACEUTICAL INDUSTRIES LTD-2024RR-440656

PATIENT
  Age: 67 Year
  Sex: Male

DRUGS (2)
  1. GEMCITABINE [Suspect]
     Active Substance: GEMCITABINE
     Indication: Bladder cancer
     Dosage: 1000 MG/MQ ON DAYS 1 AND 8, ADMINISTERED EVERY 21 DAYS
     Route: 065
     Dates: start: 202206
  2. CISPLATIN [Suspect]
     Active Substance: CISPLATIN
     Indication: Bladder cancer
     Dosage: 70 MG/MQ ON DAY 1
     Route: 065
     Dates: start: 202206

REACTIONS (3)
  - Neutropenia [Not Recovered/Not Resolved]
  - COVID-19 [Unknown]
  - Pneumonitis [Unknown]
